FAERS Safety Report 10379003 (Version 1)
Quarter: 2014Q3

REPORT INFORMATION
  Report Type: Spontaneous
  Country: GB (occurrence: GB)
  Receive Date: 20140812
  Receipt Date: 20140812
  Transmission Date: 20150326
  Serious: Yes (Other)
  Sender: FDA-Public Use
  Company Number: GB-TEVA-499620ISR

PATIENT
  Age: 45 Year
  Sex: Female

DRUGS (4)
  1. CLONAZEPAM. [Suspect]
     Active Substance: CLONAZEPAM
     Indication: PRODUCT USED FOR UNKNOWN INDICATION
     Dosage: 2 MILLIGRAM DAILY; UNKNOWN IF ONGOING
     Route: 048
     Dates: start: 20140703
  2. HALOPERIDOL. [Suspect]
     Active Substance: HALOPERIDOL
     Indication: PRODUCT USED FOR UNKNOWN INDICATION
     Dosage: 10 MILLIGRAM DAILY;
     Dates: start: 20140703
  3. CLONAZEPAM. [Suspect]
     Active Substance: CLONAZEPAM
     Dosage: FIRST DOSE WAS AN INJECTION.
     Dates: start: 20140703
  4. HERBAL REMEDY [Concomitant]
     Indication: STRESS

REACTIONS (4)
  - Tremor [Not Recovered/Not Resolved]
  - Tongue dry [Not Recovered/Not Resolved]
  - Muscle twitching [Not Recovered/Not Resolved]
  - Injection site pain [Not Recovered/Not Resolved]

NARRATIVE: CASE EVENT DATE: 20140714
